FAERS Safety Report 4888883-2 (Version None)
Quarter: 2006Q1

REPORT INFORMATION
  Report Type: 
  Country: None (occurrence: None)
  Receive Date: 20060123
  Receipt Date: 20051005
  Transmission Date: 20060701
  Serious: Yes (Hospitalization)
  Sender: FDA-Public Use
  Company Number: US-MERCK-0510USA04406

PATIENT
  Age: 47 Year
  Sex: Female
  Weight: 59 kg

DRUGS (4)
  1. VIOXX [Suspect]
     Indication: ARTHRITIS
     Route: 048
     Dates: start: 20000601, end: 20000701
  2. VIOXX [Suspect]
     Indication: FIBROMYALGIA
     Route: 048
     Dates: start: 20000601, end: 20000701
  3. PREMARIN [Concomitant]
     Route: 048
  4. DITROPAN [Concomitant]
     Route: 048

REACTIONS (7)
  - BRADYCARDIA [None]
  - BRONCHOPULMONARY DISEASE [None]
  - CARDIAC FAILURE CONGESTIVE [None]
  - DIARRHOEA [None]
  - HEADACHE [None]
  - PRODUCTIVE COUGH [None]
  - PULMONARY OEDEMA [None]
